FAERS Safety Report 4929143-0 (Version None)
Quarter: 2006Q1

REPORT INFORMATION
  Report Type: 
  Country: None (occurrence: None)
  Receive Date: 20060301
  Receipt Date: 20060220
  Transmission Date: 20060701
  Serious: Yes (Other)
  Sender: FDA-Public Use
  Company Number: EMADSS2003002662

PATIENT
  Sex: Female

DRUGS (11)
  1. REMICADE [Suspect]
     Indication: RHEUMATOID ARTHRITIS
     Dosage: 3MG/KG
     Route: 041
  2. METHOTREXATE [Concomitant]
     Indication: RHEUMATOID ARTHRITIS
     Route: 048
  3. FOLIC ACID [Concomitant]
     Route: 048
  4. FOSAMAX [Concomitant]
     Indication: OSTEOPOROSIS
     Dosage: USED FOR }5 YEARS
     Route: 048
  5. VITAMIN D [Concomitant]
     Route: 048
  6. ACETAMINOPHEN [Concomitant]
     Dosage: USED FOR }5 YEARS
     Route: 048
  7. IMOVANE [Concomitant]
     Dosage: AS NECESSARY
     Route: 048
  8. CALCIGRAN [Concomitant]
     Route: 048
  9. CALCIGRAN [Concomitant]
     Route: 048
  10. CALCIGRAN [Concomitant]
     Route: 048
  11. CALCIGRAN [Concomitant]
     Dosage: USED FOR }5 YEARS
     Route: 048

REACTIONS (1)
  - BREAST CANCER [None]
